FAERS Safety Report 9671212 (Version 1)
Quarter: 2013Q4

REPORT INFORMATION
  Report Type: Spontaneous
  Country: US (occurrence: US)
  Receive Date: 20131106
  Receipt Date: 20131106
  Transmission Date: 20140711
  Serious: No
  Sender: FDA-Public Use
  Company Number: US-PFIZER INC-2013314119

PATIENT
  Age: 60 Year
  Sex: Male
  Weight: 90.7 kg

DRUGS (6)
  1. AMLODIPINE BESILATE [Suspect]
     Indication: HYPERTENSION
     Dosage: UNK
  2. GABAPENTIN [Suspect]
     Indication: PAIN IN EXTREMITY
     Dosage: 300 MG, 2X/DAY
     Route: 048
  3. GABAPENTIN [Suspect]
     Indication: PAIN IN EXTREMITY
  4. GABAPENTIN [Suspect]
     Indication: RESTLESS LEGS SYNDROME
  5. LISINOPRIL [Suspect]
     Indication: HYPERTENSION
     Dosage: UNK
  6. IBUPROFEN [Concomitant]
     Dosage: UNK, AS NEEDED

REACTIONS (4)
  - Off label use [Unknown]
  - Blood triglycerides increased [Unknown]
  - Blood cholesterol increased [Unknown]
  - Erectile dysfunction [Unknown]
